FAERS Safety Report 4844482-X (Version None)
Quarter: 2005Q4

REPORT INFORMATION
  Report Type: 
  Country: None (occurrence: None)
  Receive Date: 20051203
  Receipt Date: 20051123
  Transmission Date: 20060501
  Serious: Yes (Other)
  Sender: FDA-Public Use
  Company Number: PHBS2005CL17663

PATIENT
  Age: 14 Year
  Sex: Male

DRUGS (1)
  1. RITALIN LA [Suspect]
     Route: 048

REACTIONS (1)
  - SUICIDAL IDEATION [None]
